FAERS Safety Report 8210910-5 (Version None)
Quarter: 2012Q1

REPORT INFORMATION
  Report Type: 
  Country: None (occurrence: None)
  Receive Date: 20120315
  Receipt Date: 20120307
  Transmission Date: 20120608
  Serious: Yes (Death, Other)
  Sender: FDA-Public Use
  Company Number: DE-CELGENEUS-062-50794-11090943

PATIENT
  Age: 82 Year
  Sex: Female
  Weight: 45 kg

DRUGS (2)
  1. VIDAZA [Suspect]
     Dosage: 100MG
     Route: 058
     Dates: start: 20110718, end: 20110726
  2. BISOPROLOL FUMARATE [Concomitant]
     Indication: HYPERTENSION
     Route: 048
     Dates: end: 20110809

REACTIONS (2)
  - CEREBRAL HAEMORRHAGE [None]
  - PANCYTOPENIA [None]
